FAERS Safety Report 21020935 (Version 1)
Quarter: 2022Q2

REPORT INFORMATION
  Report Type: Spontaneous
  Country: US (occurrence: None)
  Receive Date: 20220629
  Receipt Date: 20220629
  Transmission Date: 20220721
  Serious: Yes (Hospitalization, Other)
  Sender: FDA-Public Use
  Company Number: None

PATIENT
  Age: 52 Year
  Sex: Female

DRUGS (2)
  1. PIPERACILLIN AND TAZOBACTAM [Suspect]
     Active Substance: PIPERACILLIN SODIUM\TAZOBACTAM SODIUM
     Indication: Antibiotic therapy
     Dosage: ()
  2. VANCOMYCIN [Suspect]
     Active Substance: VANCOMYCIN
     Indication: Tonsil cancer
     Dosage: 2 DOSES OF 1250 MG ; IN TOTAL

REACTIONS (5)
  - Product administration error [Unknown]
  - Renal tubular necrosis [Recovering/Resolving]
  - Acute kidney injury [Recovering/Resolving]
  - Renal failure [Recovering/Resolving]
  - Nephropathy toxic [Recovering/Resolving]
